FAERS Safety Report 8992798 (Version 2)
Quarter: 2013Q1

REPORT INFORMATION
  Report Type: Spontaneous
  Country: JP (occurrence: JP)
  Receive Date: 20130102
  Receipt Date: 20130116
  Transmission Date: 20140127
  Serious: Yes (Hospitalization)
  Sender: FDA-Public Use
  Company Number: JP-009507513-1212JPN011005

PATIENT
  Age: 73 Year
  Sex: Male
  Weight: 54 kg

DRUGS (7)
  1. JANUVIA TABLETS 50MG [Suspect]
     Indication: DIABETES MELLITUS
     Dosage: 50 MG, QD
     Route: 048
     Dates: start: 20120419, end: 20121129
  2. AMLODIPINE BESYLATE [Suspect]
     Indication: HYPERTENSION
     Dosage: 5 MG, QD
     Route: 048
     Dates: start: 20120502, end: 20121129
  3. BLOPRESS [Suspect]
     Indication: HYPERTENSION
     Dosage: 8 MG, QD
     Route: 048
     Dates: start: 20120419, end: 20121129
  4. FLIVAS [Suspect]
     Indication: BENIGN PROSTATIC HYPERPLASIA
     Dosage: 75 MG, QD
     Route: 048
     Dates: start: 20120704, end: 20121129
  5. GAMOFA D [Suspect]
     Indication: GASTRITIS
     Dosage: 10 MG, BID
     Route: 048
     Dates: start: 20120509, end: 20121129
  6. RINPRAL [Suspect]
     Indication: CERVICOBRACHIAL SYNDROME
     Dosage: 50 MG, BID
     Route: 048
     Dates: start: 20120419, end: 20121129
  7. METGLUCO [Suspect]
     Indication: DIABETES MELLITUS
     Dosage: 250 MG, TID
     Route: 048
     Dates: start: 20120421, end: 20121129

REACTIONS (4)
  - Generalised erythema [Unknown]
  - Pruritus [None]
  - Rash [None]
  - Drug eruption [None]
